FAERS Safety Report 5368402-7 (Version None)
Quarter: 2007Q2

REPORT INFORMATION
  Report Type: 
  Country: None (occurrence: None)
  Receive Date: 20070621
  Receipt Date: 20070608
  Transmission Date: 20071010
  Serious: Yes (Life-Threatening, Other)
  Sender: FDA-Public Use
  Company Number: GXKR2007ES04671

PATIENT
  Age: 74 Year
  Sex: Female

DRUGS (7)
  1. GABAPENTIN [Suspect]
     Indication: NEURALGIA
     Dosage: 300 MG/DAY GRADUALLY INCREASED, UNKNOWN
  2. IPRATROPIUM BROMIDE [Concomitant]
  3. SALMETEROL (SALMETEROL) [Concomitant]
  4. FLUTICASONE (FLUTICASONE) INHALER [Concomitant]
  5. OXYGEN THERAPY (NO INGREDIENTS/SUBSTANCES) [Concomitant]
  6. CORTICOSTEROIDS (NO INGREDIENTS/SUBSTANCES) [Concomitant]
  7. LEVOFLOXACIN [Concomitant]

REACTIONS (6)
  - ABDOMINAL PAIN [None]
  - DEPRESSED LEVEL OF CONSCIOUSNESS [None]
  - HYPERSOMNIA [None]
  - HYPOVENTILATION [None]
  - POOR QUALITY SLEEP [None]
  - RESPIRATORY DEPRESSION [None]
